FAERS Safety Report 10018760 (Version 1)
Quarter: 2014Q1

REPORT INFORMATION
  Report Type: Spontaneous
  Country: US (occurrence: None)
  Receive Date: 20140314
  Receipt Date: 20140314
  Transmission Date: 20141002
  Serious: Yes (Other)
  Sender: FDA-Public Use
  Company Number: None

PATIENT
  Age: 39 Year
  Sex: Female
  Weight: 61.24 kg

DRUGS (1)
  1. VENLAFAXINE [Suspect]
     Indication: DEPRESSION
     Route: 048
     Dates: start: 20131203, end: 20140130

REACTIONS (11)
  - Product contamination chemical [None]
  - Headache [None]
  - Headache [None]
  - Epistaxis [None]
  - Dizziness [None]
  - Syncope [None]
  - Chest pain [None]
  - Cardiac flutter [None]
  - Fall [None]
  - Back pain [None]
  - Hyperhidrosis [None]
